FAERS Safety Report 5062661-6 (Version None)
Quarter: 2006Q3

REPORT INFORMATION
  Report Type: 
  Country: None (occurrence: None)
  Receive Date: 20060721
  Receipt Date: 20060705
  Transmission Date: 20061208
  Serious: Yes (Hospitalization, Other)
  Sender: FDA-Public Use
  Company Number: 163-20785-06070241

PATIENT
  Age: 49 Year
  Sex: Male

DRUGS (2)
  1. THALOMID [Suspect]
     Indication: MULTIPLE MYELOMA
     Dosage: 1 IN 1 D, ORAL
     Route: 048
     Dates: start: 20051208, end: 20060601
  2. LIPITOR [Suspect]
     Indication: CARDIAC DISORDER

REACTIONS (5)
  - ASTHENIA [None]
  - CORONARY ARTERY OCCLUSION [None]
  - HYPERTENSION [None]
  - HYPOTHYROIDISM [None]
  - VENTRICULAR TACHYCARDIA [None]
